FAERS Safety Report 8642583 (Version 4)
Quarter: 2013Q1

REPORT INFORMATION
  Report Type: Spontaneous
  Country: US (occurrence: US)
  Receive Date: 20120629
  Receipt Date: 20130225
  Transmission Date: 20140127
  Serious: Yes (Life-Threatening, Hospitalization)
  Sender: FDA-Public Use
  Company Number: US-AMGEN-USASP2012035599

PATIENT
  Age: 60 Year
  Sex: Female
  Weight: 66.21 kg

DRUGS (5)
  1. NEULASTA [Suspect]
     Indication: NEUTROPENIA
     Dosage: 6 MG, ONE TIME DOSE
     Route: 058
     Dates: start: 20120525, end: 20120525
  2. NEULASTA [Suspect]
     Indication: PROPHYLAXIS
  3. CARBOPLATIN [Concomitant]
     Indication: NON-SMALL CELL LUNG CANCER
     Dosage: 456 MG, UNK
     Route: 042
     Dates: start: 20120412
  4. PEMETREXED [Concomitant]
     Indication: NON-SMALL CELL LUNG CANCER
     Dosage: 870 MG, UNK
     Route: 042
     Dates: start: 20120412
  5. BEVACIZUMAB [Concomitant]
     Indication: NON-SMALL CELL LUNG CANCER
     Dosage: 1053 MG, UNK
     Route: 042
     Dates: start: 20120412

REACTIONS (2)
  - Febrile neutropenia [Recovered/Resolved]
  - Drug ineffective [Recovered/Resolved]
